FAERS Safety Report 24401177 (Version 1)
Quarter: 2024Q4

REPORT INFORMATION
  Report Type: Spontaneous
  Country: US (occurrence: US)
  Receive Date: 20241007
  Receipt Date: 20241007
  Transmission Date: 20250114
  Serious: No
  Sender: SANOFI AVENTIS
  Company Number: US-SA-SAC20240726000588

PATIENT
  Age: 42 Year
  Sex: Female
  Weight: 104 kg

DRUGS (10)
  1. DUPIXENT [Suspect]
     Active Substance: DUPILUMAB
     Indication: Dermatitis atopic
     Dosage: 600 MG, 1X
     Route: 058
  2. DUPIXENT [Suspect]
     Active Substance: DUPILUMAB
     Dosage: 300 MG QOW
     Route: 058
     Dates: start: 20240712
  3. LAMICTAL [Concomitant]
     Active Substance: LAMOTRIGINE
  4. PROTONIX [Concomitant]
     Active Substance: PANTOPRAZOLE SODIUM
  5. TRAZODONE HCL [Concomitant]
     Active Substance: TRAZODONE HYDROCHLORIDE
  6. ELIDEL [Concomitant]
     Active Substance: PIMECROLIMUS
  7. VITAMIN B12 [Concomitant]
     Active Substance: CYANOCOBALAMIN
  8. IBUPROFEN [Concomitant]
     Active Substance: IBUPROFEN
  9. TOPAMAX [Concomitant]
     Active Substance: TOPIRAMATE
  10. LEVONORGESTREL AND ETHINYL ESTRADIOL [Concomitant]
     Active Substance: ETHINYL ESTRADIOL\LEVONORGESTREL

REACTIONS (2)
  - Injection site swelling [Not Recovered/Not Resolved]
  - Ankle operation [Unknown]

NARRATIVE: CASE EVENT DATE: 20240701
